FAERS Safety Report 5073797-8 (Version None)
Quarter: 2006Q3

REPORT INFORMATION
  Report Type: 
  Country: None (occurrence: None)
  Receive Date: 20060808
  Receipt Date: 20041214
  Transmission Date: 20061208
  Serious: No
  Sender: FDA-Public Use
  Company Number: US-AMGEN-KDL103492

PATIENT
  Sex: Female
  Weight: 65.4 kg

DRUGS (7)
  1. PROCRIT [Suspect]
     Indication: MYELODYSPLASTIC SYNDROME
     Dates: start: 20041110, end: 20041202
  2. NOLVADEX [Concomitant]
     Route: 048
     Dates: start: 20010523
  3. VERAPAMIL HYDROCHLORIDE [Concomitant]
  4. XANAX [Concomitant]
  5. CITRACAL [Concomitant]
  6. ASPIRIN [Concomitant]
  7. VIACTIVE [Concomitant]

REACTIONS (7)
  - ABDOMINAL PAIN LOWER [None]
  - DIVERTICULITIS [None]
  - KIDNEY INFECTION [None]
  - MALAISE [None]
  - NAUSEA [None]
  - PAIN IN EXTREMITY [None]
  - VOMITING [None]
